FAERS Safety Report 10311820 (Version 1)
Quarter: 2014Q3

REPORT INFORMATION
  Report Type: Spontaneous
  Country: AT (occurrence: AT)
  Receive Date: 20140717
  Receipt Date: 20140717
  Transmission Date: 20150326
  Serious: Yes (Hospitalization)
  Sender: FDA-Public Use
  Company Number: AT-PFIZER INC-2014195055

PATIENT
  Age: 71 Year
  Sex: Female
  Weight: 76 kg

DRUGS (7)
  1. THROMBO ASS [Concomitant]
     Active Substance: ASPIRIN
     Dosage: UNK
  2. EUTHYROX [Concomitant]
     Active Substance: LEVOTHYROXINE SODIUM
     Dosage: UNK
  3. CONCOR [Concomitant]
     Active Substance: BISOPROLOL FUMARATE
     Dosage: UNK
  4. ZITHROMAX [Suspect]
     Active Substance: AZITHROMYCIN DIHYDRATE
     Indication: URINARY TRACT INFECTION
     Dosage: 500 MG, 1X/DAY
     Route: 048
     Dates: start: 201406, end: 201406
  5. MEXALEN [Concomitant]
     Active Substance: LUBIPROSTONE
     Indication: INFLUENZA
     Dosage: 500 MG, 1X/DAY
     Route: 048
     Dates: start: 201406, end: 201406
  6. EFFIENT [Concomitant]
     Active Substance: PRASUGREL HYDROCHLORIDE
     Dosage: UNK
  7. SORTIS [Suspect]
     Active Substance: ATORVASTATIN
     Indication: MYOCARDIAL INFARCTION
     Dosage: 40 MG, UNK
     Route: 048
     Dates: start: 201306, end: 201406

REACTIONS (3)
  - Asthenia [Recovered/Resolved]
  - Myopathy [Recovered/Resolved]
  - Drug-induced liver injury [Recovered/Resolved]

NARRATIVE: CASE EVENT DATE: 20140610
